FAERS Safety Report 7037089-X (Version None)
Quarter: 2010Q4

REPORT INFORMATION
  Report Type: 
  Country: None (occurrence: None)
  Receive Date: 20101011
  Receipt Date: 20100928
  Transmission Date: 20110411
  Serious: Yes (Disabling, Other)
  Sender: FDA-Public Use
  Company Number: PHHY2010FR43875

PATIENT
  Sex: Male

DRUGS (13)
  1. CERTICAN [Suspect]
     Indication: HEART TRANSPLANT
     Dosage: 8 MG DAILY
     Route: 048
     Dates: start: 20020101, end: 20100907
  2. CERTICAN [Suspect]
     Dosage: 2 MG, BID
     Route: 048
     Dates: start: 20070701
  3. CERTICAN [Suspect]
     Dosage: 2 MG, BID
     Route: 048
     Dates: start: 20071001
  4. FUROSEMIDE [Concomitant]
     Route: 048
  5. CELL CEPT [Concomitant]
  6. LOSARTAN [Concomitant]
     Route: 048
  7. OMACOR [Concomitant]
  8. EZETIMIBE/SIMVASTATIN [Concomitant]
     Route: 048
  9. TARDYFERON [Concomitant]
  10. KARDEGIC [Concomitant]
     Route: 048
  11. ESOMEPRAZOLE [Concomitant]
  12. SOLUPRED [Concomitant]
  13. EUPRESSYL [Concomitant]

REACTIONS (2)
  - CONJUNCTIVITIS [None]
  - EYELID OEDEMA [None]
